FAERS Safety Report 8495039-3 (Version None)
Quarter: 2012Q3

REPORT INFORMATION
  Report Type: 
  Country: None (occurrence: None)
  Receive Date: 20120702
  Receipt Date: 20120702
  Transmission Date: 20120928
  Serious: Yes (Life-Threatening, Hospitalization, Other)
  Sender: FDA-Public Use
  Company Number: None

PATIENT
  Sex: Female
  Weight: 76.2043 kg

DRUGS (1)
  1. VIIBRYD [Suspect]
     Indication: DEPRESSION
     Dosage: 10 MG -WEANING OFF OF DRUG- ONCE DAILY PO
     Route: 048
     Dates: start: 20120315, end: 20120529

REACTIONS (6)
  - DRUG INEFFECTIVE [None]
  - MALAISE [None]
  - MYOCARDIAL INFARCTION [None]
  - PROCEDURAL COMPLICATION [None]
  - TREMOR [None]
  - INFLUENZA LIKE ILLNESS [None]
